FAERS Safety Report 9357582 (Version 3)
Quarter: 2013Q3

REPORT INFORMATION
  Report Type: Spontaneous
  Country: CH (occurrence: CH)
  Receive Date: 20130620
  Receipt Date: 20130709
  Transmission Date: 20140515
  Serious: Yes (Other)
  Sender: FDA-Public Use
  Company Number: CH-ROCHE-1238827

PATIENT
  Age: 66 Year
  Sex: Female
  Weight: 58 kg

DRUGS (8)
  1. PEGFILGRASTIM [Suspect]
     Indication: PRODUCT USED FOR UNKNOWN INDICATION
     Route: 058
     Dates: start: 20091120, end: 20091224
  2. MABTHERA [Suspect]
     Indication: B-CELL LYMPHOMA
     Route: 041
     Dates: start: 20091119, end: 20091223
  3. ONCOVIN [Suspect]
     Indication: B-CELL LYMPHOMA
     Route: 040
     Dates: start: 20091119, end: 20091223
  4. ENDOXAN [Suspect]
     Indication: B-CELL LYMPHOMA
     Route: 041
     Dates: start: 20091119, end: 20091223
  5. ADRIBLASTIN [Concomitant]
     Route: 065
     Dates: start: 20091119, end: 20091223
  6. PREDNISONE [Concomitant]
  7. LITAK [Concomitant]
     Route: 065
     Dates: start: 2003
  8. LEUKERAN [Concomitant]
     Route: 065
     Dates: start: 2003

REACTIONS (2)
  - Pain in extremity [Not Recovered/Not Resolved]
  - Polyneuropathy [Not Recovered/Not Resolved]
